FAERS Safety Report 8969721 (Version 1)
Quarter: 2012Q4

REPORT INFORMATION
  Report Type: 
  Country: US (occurrence: US)
  Receive Date: 20121218
  Receipt Date: 20121218
  Transmission Date: 20130627
  Serious: Yes (Other)
  Sender: FDA-Public Use
  Company Number: US-BRISTOL-MYERS SQUIBB COMPANY-16578080

PATIENT
  Age: 16 Year
  Sex: Female

DRUGS (4)
  1. ABILIFY [Suspect]
     Indication: AFFECTIVE DISORDER
     Dosage: decreased to 1 mg once daily .restarted on 2mg daily at nt
     Route: 048
     Dates: start: 20100310
  2. ABILIFY [Suspect]
     Indication: REACTIVE ATTACHMENT DISORDER OF INFANCY OR EARLY CHILDHOOD
     Dosage: decreased to 1 mg once daily .restarted on 2mg daily at nt
     Route: 048
     Dates: start: 20100310
  3. CONCERTA [Concomitant]
     Dosage: Morning
  4. TRAZODONE HCL [Concomitant]
     Dosage: At night

REACTIONS (1)
  - Type 1 diabetes mellitus [Unknown]
